FAERS Safety Report 8614018-6 (Version None)
Quarter: 2012Q3

REPORT INFORMATION
  Report Type: 
  Country: None (occurrence: None)
  Receive Date: 20120823
  Receipt Date: 20120810
  Transmission Date: 20120928
  Serious: Yes (Other)
  Sender: FDA-Public Use
  Company Number: US-009507513-1208USA005658

PATIENT

DRUGS (2)
  1. FOSAMAX [Suspect]
     Indication: OSTEOPOROSIS
     Dosage: UNK
     Route: 048
     Dates: start: 20010101, end: 20110901
  2. FOSAMAX [Suspect]
     Indication: OSTEOPENIA

REACTIONS (2)
  - FEMUR FRACTURE [None]
  - LOW TURNOVER OSTEOPATHY [None]
